FAERS Safety Report 19775359 (Version 2)
Quarter: 2022Q2

REPORT INFORMATION
  Report Type: Spontaneous
  Country: US (occurrence: US)
  Receive Date: 20210901
  Receipt Date: 20220502
  Transmission Date: 20220721
  Serious: No
  Sender: FDA-Public Use
  Company Number: US-PFIZER INC-2021538021

PATIENT
  Age: 78 Year
  Sex: Male

DRUGS (3)
  1. LYRICA [Suspect]
     Active Substance: PREGABALIN
     Dosage: 150 MG
  2. LYRICA [Suspect]
     Active Substance: PREGABALIN
     Dosage: 50 MG, 2X/DAY
     Dates: start: 20210421
  3. LYRICA [Suspect]
     Active Substance: PREGABALIN
     Dosage: 50 UNK

REACTIONS (5)
  - Therapeutic product effect incomplete [Unknown]
  - Discomfort [Unknown]
  - Musculoskeletal discomfort [Unknown]
  - Back pain [Unknown]
  - Peripheral swelling [Unknown]
